FAERS Safety Report 24780061 (Version 1)
Quarter: 2024Q4

REPORT INFORMATION
  Report Type: Spontaneous
  Country: CN (occurrence: CN)
  Receive Date: 20241227
  Receipt Date: 20241227
  Transmission Date: 20250115
  Serious: Yes (Other)
  Sender: BEIGENE
  Company Number: CN-BEIGENE-BGN-2024-020720

PATIENT

DRUGS (2)
  1. TISLELIZUMAB [Suspect]
     Active Substance: TISLELIZUMAB
     Indication: Neoplasm malignant
     Dosage: 200 MILLIGRAM
     Route: 041
     Dates: start: 20241109
  2. PACLITAXEL [Suspect]
     Active Substance: PACLITAXEL
     Indication: Neoplasm malignant
     Dosage: 100 MILLIGRAM
     Route: 041
     Dates: start: 20241109

REACTIONS (1)
  - Myelosuppression [Not Recovered/Not Resolved]

NARRATIVE: CASE EVENT DATE: 20241113
